FAERS Safety Report 5197334-2 (Version None)
Quarter: 2006Q4

REPORT INFORMATION
  Report Type: 
  Country: None (occurrence: None)
  Receive Date: 20061228
  Receipt Date: 20061214
  Transmission Date: 20070319
  Serious: Yes (Other)
  Sender: FDA-Public Use
  Company Number: 2006BI018142

PATIENT
  Age: 37 Year
  Sex: Male

DRUGS (1)
  1. ZEVALIN [Suspect]

REACTIONS (2)
  - CATARACT [None]
  - OCCUPATIONAL EXPOSURE TO TOXIC AGENT [None]
